FAERS Safety Report 6982670-7 (Version None)
Quarter: 2010Q3

REPORT INFORMATION
  Report Type: 
  Country: None (occurrence: None)
  Receive Date: 20100909
  Receipt Date: 20100901
  Transmission Date: 20110219
  Serious: Yes (Other)
  Sender: FDA-Public Use
  Company Number: 1000015369

PATIENT
  Age: 63 Year
  Sex: Female

DRUGS (8)
  1. THYROID TAB [Suspect]
     Indication: HYPOTHYROIDISM
     Dosage: 120 MG (120 MG, 1 IN 1 D) ORAL, 15 MG (15 MG, 1 IN 1 D), ORAL
     Dates: start: 20100613, end: 20100727
  2. THYROID TAB [Suspect]
     Indication: HYPOTHYROIDISM
     Dosage: 120 MG (120 MG, 1 IN 1 D) ORAL, 15 MG (15 MG, 1 IN 1 D), ORAL
     Dates: start: 20100813, end: 20100813
  3. THYROID TAB [Suspect]
     Indication: HYPOTHYROIDISM
     Dosage: 30 MG (30 MG, 1 IN 1 D) SEE IMAGE
     Route: 048
     Dates: start: 20100814, end: 20100816
  4. THYROID TAB [Suspect]
     Indication: HYPOTHYROIDISM
     Dosage: 30 MG (30 MG, 1 IN 1 D) SEE IMAGE
     Route: 048
     Dates: start: 20100817, end: 20100819
  5. THYROID TAB [Suspect]
     Indication: HYPOTHYROIDISM
     Dosage: 30 MG (30 MG, 1 IN 1 D) SEE IMAGE
     Route: 048
     Dates: start: 20100820, end: 20100823
  6. THYROID TAB [Suspect]
     Indication: HYPOTHYROIDISM
     Dosage: 30 MG (30 MG, 1 IN 1 D) SEE IMAGE
     Route: 048
     Dates: start: 20100824, end: 20100826
  7. THYROID TAB [Suspect]
     Indication: HYPOTHYROIDISM
     Dosage: 30 MG (30 MG, 1 IN 1 D) SEE IMAGE
     Route: 048
     Dates: start: 20100827, end: 20100827
  8. THYROID TAB [Suspect]
     Indication: HYPOTHYROIDISM
     Dosage: 30 MG (30 MG, 1 IN 1 D) SEE IMAGE
     Route: 048
     Dates: start: 20100828, end: 20100831

REACTIONS (15)
  - ANXIETY [None]
  - COLD SWEAT [None]
  - DECREASED APPETITE [None]
  - DEPRESSION [None]
  - DRUG INEFFECTIVE [None]
  - FEELING JITTERY [None]
  - HYPERHIDROSIS [None]
  - HYPERTHYROIDISM [None]
  - HYPOTHYROIDISM [None]
  - INSOMNIA [None]
  - MYALGIA [None]
  - PANIC ATTACK [None]
  - SELF-MEDICATION [None]
  - SUICIDAL IDEATION [None]
  - WEIGHT DECREASED [None]
